FAERS Safety Report 19070587 (Version 2)
Quarter: 2021Q2

REPORT INFORMATION
  Report Type: Spontaneous
  Country: US (occurrence: US)
  Receive Date: 20210330
  Receipt Date: 20210412
  Transmission Date: 20210717
  Serious: No
  Sender: FDA-Public Use
  Company Number: US-AMGEN-USASP2021043963

PATIENT
  Sex: Female

DRUGS (2)
  1. PROLIA [Suspect]
     Active Substance: DENOSUMAB
     Indication: OSTEOPOROSIS POSTMENOPAUSAL
     Dosage: UNK
     Route: 065
  2. HYDROXYUREA. [Concomitant]
     Active Substance: HYDROXYUREA

REACTIONS (7)
  - Platelet count increased [Unknown]
  - Rash erythematous [Not Recovered/Not Resolved]
  - Anaemia [Unknown]
  - Contusion [Unknown]
  - Rash pruritic [Not Recovered/Not Resolved]
  - Fall [Unknown]
  - White blood cell count increased [Unknown]
